FAERS Safety Report 7234305-6 (Version None)
Quarter: 2010Q4

REPORT INFORMATION
  Report Type: 
  Country: None (occurrence: None)
  Receive Date: 20101130
  Receipt Date: 20081021
  Transmission Date: 20110411
  Serious: Yes (Other)
  Sender: FDA-Public Use
  Company Number: 2008-185657-NL

PATIENT
  Age: 26 Year
  Sex: Female
  Weight: 123.8 kg

DRUGS (4)
  1. NUVARING [Suspect]
     Indication: CONTRACEPTION
     Dosage: 1 DF;QM;VAG
     Route: 067
     Dates: start: 20060501, end: 20061028
  2. NUVARING [Suspect]
     Indication: MENSTRUAL CYCLE MANAGEMENT
     Dosage: 1 DF;QM;VAG
     Route: 067
     Dates: start: 20060501, end: 20061028
  3. TUMS [Concomitant]
  4. SYNTHROID [Concomitant]

REACTIONS (5)
  - DEEP VEIN THROMBOSIS [None]
  - DEVICE EXPULSION [None]
  - MENSTRUATION IRREGULAR [None]
  - SMALL INTESTINAL OBSTRUCTION [None]
  - UTERINE LEIOMYOMA [None]
